FAERS Safety Report 24658253 (Version 1)
Quarter: 2024Q4

REPORT INFORMATION
  Report Type: Spontaneous
  Country: US (occurrence: US)
  Receive Date: 20241125
  Receipt Date: 20241125
  Transmission Date: 20250114
  Serious: Yes (Other)
  Sender: STRIDES
  Company Number: US-STRIDES ARCOLAB LIMITED-2024SP014189

PATIENT
  Sex: Female

DRUGS (18)
  1. TACROLIMUS [Suspect]
     Active Substance: TACROLIMUS
     Indication: Chronic spontaneous urticaria
     Dosage: UNK
     Route: 048
  2. TACROLIMUS [Suspect]
     Active Substance: TACROLIMUS
     Indication: Alopecia universalis
  3. TACROLIMUS [Suspect]
     Active Substance: TACROLIMUS
     Indication: Dermatitis atopic
  4. CYCLOSPORINE [Suspect]
     Active Substance: CYCLOSPORINE
     Indication: Chronic spontaneous urticaria
     Dosage: UNK
     Route: 065
  5. CYCLOSPORINE [Suspect]
     Active Substance: CYCLOSPORINE
     Indication: Alopecia universalis
  6. CYCLOSPORINE [Suspect]
     Active Substance: CYCLOSPORINE
     Indication: Dermatitis atopic
  7. MONTELUKAST [Suspect]
     Active Substance: MONTELUKAST
     Indication: Chronic spontaneous urticaria
     Dosage: UNK, QD
     Route: 065
  8. MONTELUKAST [Suspect]
     Active Substance: MONTELUKAST
     Indication: Alopecia universalis
  9. MONTELUKAST [Suspect]
     Active Substance: MONTELUKAST
     Indication: Dermatitis atopic
  10. ALBUTEROL [Suspect]
     Active Substance: ALBUTEROL
     Indication: Chronic spontaneous urticaria
     Dosage: UNK, QD
     Route: 048
  11. ALBUTEROL [Suspect]
     Active Substance: ALBUTEROL
     Indication: Alopecia universalis
  12. ALBUTEROL [Suspect]
     Active Substance: ALBUTEROL
     Indication: Dermatitis atopic
  13. DAPSONE [Suspect]
     Active Substance: DAPSONE
     Indication: Chronic spontaneous urticaria
     Dosage: UNK
     Route: 065
  14. DAPSONE [Suspect]
     Active Substance: DAPSONE
     Indication: Alopecia universalis
  15. DAPSONE [Suspect]
     Active Substance: DAPSONE
     Indication: Dermatitis atopic
  16. OMALIZUMAB [Suspect]
     Active Substance: OMALIZUMAB
     Indication: Chronic spontaneous urticaria
     Dosage: UNK
     Route: 065
  17. OMALIZUMAB [Suspect]
     Active Substance: OMALIZUMAB
     Indication: Alopecia universalis
  18. OMALIZUMAB [Suspect]
     Active Substance: OMALIZUMAB
     Indication: Dermatitis atopic

REACTIONS (3)
  - Treatment failure [Unknown]
  - Therapy partial responder [Unknown]
  - Off label use [Unknown]
